FAERS Safety Report 6775728-9 (Version None)
Quarter: 2010Q2

REPORT INFORMATION
  Report Type: 
  Country: None (occurrence: None)
  Receive Date: 20100617
  Receipt Date: 20100603
  Transmission Date: 20101027
  Serious: Yes (Other)
  Sender: FDA-Public Use
  Company Number: US-BAUSCH-2010BL002243

PATIENT
  Age: 12 Year
  Sex: Female

DRUGS (1)
  1. PROPARACAINE HCL [Suspect]
     Indication: OPHTHALMOLOGICAL EXAMINATION
     Route: 047
     Dates: start: 20080509, end: 20080509

REACTIONS (4)
  - BLINDNESS UNILATERAL [None]
  - CONVULSION [None]
  - EYE INJURY [None]
  - FALL [None]
